FAERS Safety Report 24460693 (Version 1)
Quarter: 2024Q4

REPORT INFORMATION
  Report Type: Spontaneous
  Country: US (occurrence: None)
  Receive Date: 20241017
  Receipt Date: 20241017
  Transmission Date: 20250115
  Serious: Yes (Life-Threatening, Other)
  Sender: Public
  Company Number: None

PATIENT
  Age: 29 Year
  Sex: Female
  Weight: 50.85 kg

DRUGS (5)
  1. AUGMENTIN [Suspect]
     Active Substance: AMOXICILLIN\CLAVULANATE POTASSIUM
     Indication: Pneumonia
     Dosage: OTHER QUANTITY : 14 TABLET(S);?FREQUENCY : TWICE A DAY;?
     Route: 048
     Dates: start: 20241008, end: 20241015
  2. BENZONATATE [Suspect]
     Active Substance: BENZONATATE
  3. AZITHROMYCIN [Suspect]
     Active Substance: AZITHROMYCIN
  4. PROMETHAZINE [Concomitant]
     Active Substance: PROMETHAZINE HYDROCHLORIDE
  5. Seed: Probiotic and Prebiotic Proteolytic Enzymes [Concomitant]

REACTIONS (6)
  - Nausea [None]
  - Dizziness [None]
  - Fatigue [None]
  - Asthenia [None]
  - Chest pain [None]
  - Hypersensitivity [None]

NARRATIVE: CASE EVENT DATE: 20241014
